FAERS Safety Report 7074858-4 (Version None)
Quarter: 2010Q4

REPORT INFORMATION
  Report Type: 
  Country: None (occurrence: None)
  Receive Date: 20101029
  Receipt Date: 20101018
  Transmission Date: 20110411
  Serious: Yes (Other)
  Sender: FDA-Public Use
  Company Number: PHHY2010US66046

PATIENT
  Sex: Female

DRUGS (1)
  1. RECLAST [Suspect]
     Dosage: UNK
     Dates: start: 20100720

REACTIONS (4)
  - BLOOD URINE PRESENT [None]
  - PAIN [None]
  - RENAL DISORDER [None]
  - URINARY TRACT INFECTION [None]
